FAERS Safety Report 8947691 (Version 3)
Quarter: 2013Q1

REPORT INFORMATION
  Report Type: Spontaneous
  Country: DK (occurrence: IS)
  Receive Date: 20121204
  Receipt Date: 20130109
  Transmission Date: 20140127
  Serious: Yes (Death, Other)
  Sender: FDA-Public Use
  Company Number: PHHY2012IS107476

PATIENT
  Age: 31 Year
  Sex: Male

DRUGS (3)
  1. LEPONEX [Suspect]
     Indication: SCHIZOPHRENIA
  2. LARGACTIL [Concomitant]
     Dosage: UNK UKN, UNK
  3. RIVOTRIL [Concomitant]
     Dosage: UNK UKN, UNK

REACTIONS (10)
  - Myocardial infarction [Fatal]
  - Psychiatric symptom [Not Recovered/Not Resolved]
  - Feeling abnormal [Unknown]
  - Panic attack [Unknown]
  - Decreased interest [Unknown]
  - Anxiety [Unknown]
  - Fear [Unknown]
  - Fatigue [Unknown]
  - Weight increased [Unknown]
  - Drug ineffective [Unknown]
